FAERS Safety Report 5164979-5 (Version None)
Quarter: 2006Q4

REPORT INFORMATION
  Report Type: 
  Country: None (occurrence: None)
  Receive Date: 20061124
  Receipt Date: 20061115
  Transmission Date: 20070319
  Serious: Yes (Other)
  Sender: FDA-Public Use
  Company Number: 2006131543

PATIENT
  Age: 71 Year
  Sex: Male
  Weight: 62 kg

DRUGS (8)
  1. ATARAX [Suspect]
     Indication: ANAESTHETIC PREMEDICATION
     Dosage: (50 MG), INTRAMUSCULAR
     Route: 030
     Dates: start: 20050301
  2. FENTANYL CITRATE [Suspect]
     Indication: ANAESTHESIA
     Dosage: (0.1 MG), INTRAVENOUS
     Route: 042
     Dates: start: 20050301
  3. PROPOFOL [Suspect]
     Indication: ANAESTHESIA
     Dosage: (160 MG), INTRAVNEOUS
     Route: 042
     Dates: start: 20050301
  4. VECURONIUM BROMIDE [Suspect]
     Indication: ANAESTHESIA
     Dosage: (8 MG), INTRAVENOUS
     Route: 042
     Dates: start: 20050301
  5. NITROUS OXIDE (NITROUS OXIDE) [Concomitant]
  6. OXYGEN (OXYGEN) [Concomitant]
  7. SEVOFLURANE [Concomitant]
  8. ALL OTHER THERAPEUTIC PRODUCTS (ALL OTHER THERAPEUTIC PRODUCTS) [Concomitant]

REACTIONS (12)
  - ALANINE AMINOTRANSFERASE INCREASED [None]
  - ASPARTATE AMINOTRANSFERASE INCREASED [None]
  - AUTOTRANSFUSION [None]
  - BACTERIAL INFECTION [None]
  - BLOOD AMYLASE INCREASED [None]
  - BLOOD LACTATE DEHYDROGENASE [None]
  - HAEMOLYSIS [None]
  - HEPATIC FUNCTION ABNORMAL [None]
  - HYPERTHERMIA MALIGNANT [None]
  - JAUNDICE [None]
  - LIVER DISORDER [None]
  - POST PROCEDURAL COMPLICATION [None]
